FAERS Safety Report 19673244 (Version 1)
Quarter: 2021Q3

REPORT INFORMATION
  Report Type: Spontaneous
  Country: US (occurrence: US)
  Receive Date: 20210806
  Receipt Date: 20210806
  Transmission Date: 20211014
  Serious: No
  Sender: FDA-Public Use
  Company Number: None

PATIENT

DRUGS (3)
  1. IMOGAM RABIES?HT [Suspect]
     Active Substance: HUMAN RABIES VIRUS IMMUNE GLOBULIN
  2. KEDRAB [Suspect]
     Active Substance: HUMAN RABIES VIRUS IMMUNE GLOBULIN
  3. HYPERRAB [Suspect]
     Active Substance: HUMAN RABIES VIRUS IMMUNE GLOBULIN

REACTIONS (3)
  - Off label use [None]
  - Product preparation issue [None]
  - Product label issue [None]
